FAERS Safety Report 7738056-0 (Version None)
Quarter: 2011Q3

REPORT INFORMATION
  Report Type: 
  Country: None (occurrence: None)
  Receive Date: 20110908
  Receipt Date: 20110902
  Transmission Date: 20111222
  Serious: Yes (Hospitalization, Other)
  Sender: FDA-Public Use
  Company Number: JP-ABBOTT-11P-087-0851240-00

PATIENT
  Sex: Male
  Weight: 78 kg

DRUGS (3)
  1. HUMIRA [Suspect]
     Indication: CROHN'S DISEASE
     Route: 058
     Dates: start: 20110326
  2. MESALAMINE [Concomitant]
     Indication: CROHN'S DISEASE
     Dosage: 3GRAM DAILY
     Route: 048
  3. ENTERAL [Concomitant]
     Indication: PRODUCT USED FOR UNKNOWN INDICATION

REACTIONS (4)
  - EDUCATIONAL PROBLEM [None]
  - SUICIDAL IDEATION [None]
  - ADJUSTMENT DISORDER [None]
  - SUICIDE ATTEMPT [None]
